FAERS Safety Report 24154600 (Version 1)
Quarter: 2024Q3

REPORT INFORMATION
  Report Type: Spontaneous
  Country: JP (occurrence: JP)
  Receive Date: 20240731
  Receipt Date: 20240731
  Transmission Date: 20241016
  Serious: Yes (Other)
  Sender: CHEPLAPHARM
  Company Number: JP-CHEPLA-2024009523

PATIENT
  Sex: Male

DRUGS (3)
  1. HYDROXYUREA [Suspect]
     Active Substance: HYDROXYUREA
     Indication: Myeloproliferative neoplasm
  2. ASPIRIN [Suspect]
     Active Substance: ASPIRIN
     Indication: Myeloproliferative neoplasm
  3. DECITABINE [Suspect]
     Active Substance: DECITABINE
     Indication: Myeloproliferative neoplasm

REACTIONS (11)
  - Deep vein thrombosis [Unknown]
  - COVID-19 pneumonia [Unknown]
  - Renal impairment [Unknown]
  - Cardiac failure chronic [Unknown]
  - COVID-19 [Not Recovered/Not Resolved]
  - Obesity [Unknown]
  - Blood lactate dehydrogenase increased [Unknown]
  - C-reactive protein increased [Unknown]
  - Cardiomegaly [Unknown]
  - Pleural effusion [Unknown]
  - Off label use [Unknown]
